FAERS Safety Report 15122382 (Version 1)
Quarter: 2018Q3

REPORT INFORMATION
  Report Type: Spontaneous
  Country: GB (occurrence: GB)
  Receive Date: 20180709
  Receipt Date: 20180709
  Transmission Date: 20181010
  Serious: Yes (Disabling, Other)
  Sender: FDA-Public Use
  Company Number: GB-TEVA-2018-GB-923162

PATIENT
  Age: 74 Year
  Sex: Male
  Weight: 88 kg

DRUGS (9)
  1. OMEPRAZOLE. [Concomitant]
     Active Substance: OMEPRAZOLE
     Dosage: 20 MILLIGRAM DAILY;
     Dates: start: 20180329
  2. NAPROXEN. [Concomitant]
     Active Substance: NAPROXEN
     Dosage: 1000 MILLIGRAM DAILY;
     Dates: start: 20180307
  3. PREDNISOLONE. [Concomitant]
     Active Substance: PREDNISOLONE
     Dosage: 20 MILLIGRAM DAILY;
     Dates: start: 20180426
  4. ACETYLSALICYLIC ACID [Concomitant]
     Active Substance: ASPIRIN
     Dosage: 150 MILLIGRAM DAILY;
     Dates: start: 20180314
  5. COLCHICINE. [Concomitant]
     Active Substance: COLCHICINE
     Dosage: 1500 MICROGRAM DAILY; FOR 4 DAYS
     Dates: start: 20180326
  6. BISOPROLOL [Concomitant]
     Active Substance: BISOPROLOL
     Dosage: 2.5 MILLIGRAM DAILY;
     Dates: start: 20180314
  7. ALLOPURINOL. [Suspect]
     Active Substance: ALLOPURINOL
     Route: 048
  8. VISCOTEARS [Concomitant]
     Active Substance: CARBOMER
     Dosage: 3?4 TIMES DAILY. 2MG/G 0.6ML UNIT DOSE.
     Route: 047
     Dates: start: 20180307
  9. ROSUVASTATIN. [Suspect]
     Active Substance: ROSUVASTATIN
     Dosage: 10 MILLIGRAM DAILY;
     Dates: start: 20180314

REACTIONS (4)
  - Pain in extremity [Unknown]
  - Blood creatine phosphokinase increased [Unknown]
  - Myositis [Recovered/Resolved]
  - Myalgia [Unknown]

NARRATIVE: CASE EVENT DATE: 20180521
